FAERS Safety Report 9893587 (Version 2)
Quarter: 2014Q1

REPORT INFORMATION
  Report Type: Spontaneous
  Country: GB (occurrence: GB)
  Receive Date: 20140213
  Receipt Date: 20140213
  Transmission Date: 20141002
  Serious: Yes (Other)
  Sender: FDA-Public Use
  Company Number: GB-009507513-1401GBR010492

PATIENT
  Sex: Female

DRUGS (2)
  1. NEXPLANON [Suspect]
     Dosage: UNK
     Route: 059
     Dates: start: 200412
  2. LEVOXINE [Concomitant]
     Indication: HYPOTHYROIDISM
     Dosage: LOW DOSE
     Dates: start: 201311

REACTIONS (2)
  - Hypothyroidism [Unknown]
  - Incorrect drug administration duration [Unknown]
